FAERS Safety Report 20128981 (Version 2)
Quarter: 2021Q4

REPORT INFORMATION
  Report Type: Other
  Country: JP (occurrence: JP)
  Receive Date: 20211130
  Receipt Date: 20211217
  Transmission Date: 20220303
  Serious: Yes (Other)
  Sender: FDA-Public Use
  Company Number: JP-002147023-NVSJ2021JP018944

PATIENT
  Age: 36 Week
  Sex: Male
  Weight: 1.072 kg

DRUGS (1)
  1. RANIBIZUMAB [Suspect]
     Active Substance: RANIBIZUMAB
     Indication: Retinopathy of prematurity
     Route: 031
     Dates: start: 20210316

REACTIONS (3)
  - Vena cava thrombosis [Unknown]
  - Concomitant disease aggravated [Unknown]
  - Renal vein thrombosis [Unknown]
